FAERS Safety Report 7588613-X (Version None)
Quarter: 2011Q2

REPORT INFORMATION
  Report Type: 
  Country: None (occurrence: None)
  Receive Date: 20110627
  Receipt Date: 20110616
  Transmission Date: 20111010
  Serious: Yes (Death, Hospitalization)
  Sender: FDA-Public Use
  Company Number: 118657

PATIENT
  Age: 47 Year
  Sex: Male

DRUGS (1)
  1. METHYLPREDNISOLONE SODIUM SUCCINATE [Suspect]
     Indication: INFECTION
     Dosage: 40MG/DAY

REACTIONS (2)
  - RENAL IMPAIRMENT [None]
  - DIABETIC HYPEROSMOLAR COMA [None]
